FAERS Safety Report 17180266 (Version 1)
Quarter: 2019Q4

REPORT INFORMATION
  Report Type: Report from Study
  Country: None (occurrence: US)
  Receive Date: 20191220
  Receipt Date: 20191220
  Transmission Date: 20200122
  Serious: Yes (Other)
  Sender: FDA-Public Use
  Company Number: US-ABBVIE-18K-163-3099666-00

PATIENT
  Sex: Male

DRUGS (2)
  1. IMBRUVICA [Suspect]
     Active Substance: IBRUTINIB
     Indication: CHRONIC LYMPHOCYTIC LEUKAEMIA
     Route: 048
     Dates: start: 20180528
  2. IMBRUVICA [Suspect]
     Active Substance: IBRUTINIB
     Indication: CHRONIC LYMPHOCYTIC LEUKAEMIA
     Dosage: 420 MG, QD
     Route: 048

REACTIONS (10)
  - Device occlusion [Not Recovered/Not Resolved]
  - Bladder prolapse [Unknown]
  - Constipation [Not Recovered/Not Resolved]
  - Infection [Not Recovered/Not Resolved]
  - Product dose omission [Unknown]
  - White blood cell count increased [Unknown]
  - Urinary retention [Not Recovered/Not Resolved]
  - Prostatic disorder [Unknown]
  - Benign prostatic hyperplasia [Unknown]
  - Back pain [Not Recovered/Not Resolved]
